FAERS Safety Report 15982935 (Version 2)
Quarter: 2019Q1

REPORT INFORMATION
  Report Type: Spontaneous
  Country: PT (occurrence: PT)
  Receive Date: 20190219
  Receipt Date: 20190308
  Transmission Date: 20190418
  Serious: Yes (Other)
  Sender: FDA-Public Use
  Company Number: PHHY2019PT038770

PATIENT
  Age: 84 Year
  Sex: Male

DRUGS (11)
  1. MODURETIC 5-50 [Concomitant]
     Active Substance: AMILORIDE HYDROCHLORIDE\HYDROCHLOROTHIAZIDE
     Indication: PRODUCT USED FOR UNKNOWN INDICATION
     Dosage: 50/5 MG, (0.5 TABLET EVERY OTHER DAY, ALTERNATED WITH THE PREVIOUS, IN A TOTAL OF 1.5 TABLETS WEEKLY
     Route: 065
  2. CLOPIDOGREL ALMUS [Concomitant]
     Indication: PRODUCT USED FOR UNKNOWN INDICATION
     Dosage: 75 MG, (22 TABLETS, 1 WEEKLY)
     Route: 065
     Dates: start: 20180228
  3. VARFINE [Concomitant]
     Active Substance: WARFARIN SODIUM
     Indication: PRODUCT USED FOR UNKNOWN INDICATION
     Dosage: (IN A QUANTITY I CANNOT SPECIFY, PERHAPS DURING APPROXIMATELY ONE MONTH, 1 TABLET DAILY)
     Route: 065
     Dates: start: 20180228
  4. TROMALYT [Concomitant]
     Active Substance: ASPIRIN
     Indication: PRODUCT USED FOR UNKNOWN INDICATION
     Dosage: 150 MG, UNK
     Route: 065
  5. ASIAPIRINE [Concomitant]
     Dosage: 600 MG, QW (SINCE APPROXIMATELY 2 MONTHS AGO)
     Route: 065
  6. AMIODARONA [Concomitant]
     Active Substance: AMIODARONE
     Indication: PRODUCT USED FOR UNKNOWN INDICATION
     Dosage: 200 MG, (4 TABLETS, 1 DAILY)
     Route: 065
     Dates: start: 20180228
  7. GLIMEPIRIDA [Concomitant]
     Active Substance: GLIMEPIRIDE
     Indication: PRODUCT USED FOR UNKNOWN INDICATION
     Dosage: 1 MG, (4 TABLETS, 1 DAILY)
     Route: 065
     Dates: start: 20180228
  8. ATORVASTATINA GENERIS [Concomitant]
     Indication: PRODUCT USED FOR UNKNOWN INDICATION
     Dosage: 10 MG, (4 TABLETS, 1 DAILY)
     Route: 065
     Dates: start: 20180228
  9. ASIAPIRINE [Concomitant]
     Indication: PRODUCT USED FOR UNKNOWN INDICATION
     Dosage: 100 MG, (TABLET DAILY, OF ONE OR THE OTHER)
     Route: 065
  10. BISOPROLOL SANDOZ [Suspect]
     Active Substance: BISOPROLOL
     Indication: PRODUCT USED FOR UNKNOWN INDICATION
     Dosage: 0.5 DF (5 MG), QD
     Route: 065
     Dates: start: 20180214
  11. LASIX [Concomitant]
     Active Substance: FUROSEMIDE
     Indication: PRODUCT USED FOR UNKNOWN INDICATION
     Dosage: 40 MG, (0.5 TABLET EVERY OTHER DAY, IN A TOTAL OF 1.5 TABLETS WEEKLY)
     Route: 065

REACTIONS (4)
  - Breast pain [Not Recovered/Not Resolved]
  - Wrong technique in product usage process [Unknown]
  - Gynaecomastia [Unknown]
  - Breast mass [Not Recovered/Not Resolved]

NARRATIVE: CASE EVENT DATE: 201807
